FAERS Safety Report 4408809-5 (Version None)
Quarter: 2004Q3

REPORT INFORMATION
  Report Type: 
  Country: None (occurrence: None)
  Receive Date: 20040727
  Receipt Date: 20040525
  Transmission Date: 20050211
  Serious: Yes (Death, Life-Threatening, Disabling)
  Sender: FDA-Public Use
  Company Number: BE-MERCK-0405BEL00036

PATIENT
  Age: 68 Year
  Sex: Male
  Weight: 89 kg

DRUGS (12)
  1. CORDARONE [Concomitant]
     Indication: ATRIAL FIBRILLATION
     Route: 065
     Dates: start: 20040317, end: 20040430
  2. AMBISOME [Concomitant]
     Indication: CANDIDIASIS
     Route: 042
     Dates: start: 20040322, end: 20040325
  3. ATROPINE [Concomitant]
     Indication: SHOCK
     Route: 042
     Dates: start: 20040501, end: 20040501
  4. CANCIDAS [Suspect]
     Indication: CANDIDIASIS
     Route: 042
     Dates: start: 20040326, end: 20040327
  5. CANCIDAS [Suspect]
     Route: 042
     Dates: start: 20040328, end: 20040411
  6. MAXIPIME [Concomitant]
     Indication: SEPSIS
     Route: 042
     Dates: start: 20040421, end: 20040430
  7. DOBUTREX [Concomitant]
     Indication: SHOCK
     Route: 041
     Dates: start: 20040501, end: 20040501
  8. EPINEPHRINE HYDROCHLORIDE [Concomitant]
     Indication: SHOCK
     Route: 041
     Dates: start: 20040501, end: 20040501
  9. FLUCONAZOLE [Concomitant]
     Indication: CANDIDIASIS
     Route: 042
     Dates: start: 20040321, end: 20040322
  10. TAVANIC [Concomitant]
     Indication: SEPSIS
     Route: 065
     Dates: start: 20040421, end: 20040430
  11. SOLU-MEDROL [Concomitant]
     Indication: ACUTE RESPIRATORY DISTRESS SYNDROME
     Route: 042
     Dates: start: 20040422, end: 20040430
  12. LEVOPHED [Concomitant]
     Indication: SHOCK
     Route: 041
     Dates: start: 20040430, end: 20040501

REACTIONS (2)
  - AORTIC RUPTURE [None]
  - SHOCK HAEMORRHAGIC [None]
